FAERS Safety Report 7157831-7 (Version None)
Quarter: 2010Q4

REPORT INFORMATION
  Report Type: 
  Country: None (occurrence: None)
  Receive Date: 20101214
  Receipt Date: 20101208
  Transmission Date: 20110411
  Serious: Yes (Other)
  Sender: FDA-Public Use
  Company Number: US-BRISTOL-MYERS SQUIBB COMPANY-15431034

PATIENT
  Age: 44 Year
  Sex: Female
  Weight: 113 kg

DRUGS (6)
  1. COUMADIN [Suspect]
     Indication: THROMBOSIS
     Dosage: ONGOING
     Route: 048
     Dates: start: 20090601
  2. COUMADIN [Suspect]
     Indication: COAGULOPATHY
     Dosage: ONGOING
     Route: 048
     Dates: start: 20090601
  3. REBIF [Suspect]
     Indication: MULTIPLE SCLEROSIS
     Dosage: DOSE INCREASED TO 22MCG 2010:2010,44MCG 2010:ONG
     Route: 058
     Dates: start: 20100512, end: 20100101
  4. POTASSIUM GLUCONATE TAB [Concomitant]
     Indication: BLOOD POTASSIUM DECREASED
     Route: 048
  5. HYDROCHLOROTHIAZIDE [Concomitant]
     Indication: HYPERTENSION
  6. SYNTHROID [Concomitant]
     Indication: HYPOTHYROIDISM

REACTIONS (5)
  - ABDOMINAL DISCOMFORT [None]
  - CHEST DISCOMFORT [None]
  - INJECTION SITE ERYTHEMA [None]
  - INTERNATIONAL NORMALISED RATIO ABNORMAL [None]
  - MUSCULAR WEAKNESS [None]
